FAERS Safety Report 9147203 (Version 3)
Quarter: 2013Q1

REPORT INFORMATION
  Report Type: Spontaneous
  Country: AU (occurrence: AU)
  Receive Date: 20130307
  Receipt Date: 20130322
  Transmission Date: 20140127
  Serious: Yes (Life-Threatening, Other)
  Sender: FDA-Public Use
  Company Number: PHHY2013AU021417

PATIENT
  Age: 4 Year
  Sex: Male
  Weight: 16 kg

DRUGS (10)
  1. CICLOSPORIN [Suspect]
  2. MYCOPHENOLATE MOFETIL [Suspect]
     Dosage: 200 MG, BID
     Route: 048
  3. PREDNISOLONE [Suspect]
     Dosage: 2 MG/KG, PER DAY
     Route: 048
  4. PREDNISOLONE [Suspect]
     Dosage: 1 MG/KG, PER DAY
     Route: 048
  5. PREDNISOLONE [Suspect]
     Dosage: 0.75 MG/KG, PER DAY
     Route: 048
  6. PREDNISOLONE [Suspect]
     Dosage: 0.5 MG/KG, PER DAY
     Route: 048
  7. PREDNISOLONE [Suspect]
     Dosage: 1 MG/KG
     Route: 048
  8. GLIVEC [Concomitant]
     Indication: GRAFT VERSUS HOST DISEASE
     Dosage: 50 MG, PER DAY
     Route: 048
     Dates: start: 20120716, end: 20120812
  9. GLIVEC [Concomitant]
     Dosage: 100 MG, PER DAY
     Route: 048
     Dates: start: 20120813, end: 20121129
  10. GLIVEC [Concomitant]
     Dosage: 150 MG, PER DAY
     Route: 048
     Dates: start: 20121130

REACTIONS (8)
  - Sepsis [Recovered/Resolved]
  - Wound decomposition [Recovered/Resolved]
  - Staphylococcal infection [Recovered/Resolved]
  - Osteomyelitis [Unknown]
  - Failure to thrive [Not Recovered/Not Resolved]
  - Chronic graft versus host disease [Unknown]
  - Acute graft versus host disease in skin [Unknown]
  - Concomitant disease progression [Unknown]
